FAERS Safety Report 8951300 (Version 2)
Quarter: 2013Q1

REPORT INFORMATION
  Report Type: Spontaneous
  Country: US (occurrence: None)
  Receive Date: 20121114
  Receipt Date: 20121231
  Transmission Date: 20140127
  Serious: No
  Sender: FDA-Public Use
  Company Number: 2012PROUSA02254

PATIENT
  Age: 77 Year
  Sex: Male
  Weight: 99.6 kg

DRUGS (13)
  1. PROVENGE (SIPULEUCEL-T) SUSPENSION, 250ML [Suspect]
     Indication: PROSTATE CANCER METASTATIC
     Route: 042
     Dates: start: 20121026, end: 20121026
  2. ASA (ACETYLSALICYLIC ACID) [Concomitant]
  3. COUMADIN (WARFARIN SODIUM) [Concomitant]
  4. FELODIPINE (FELODIPINE) [Concomitant]
  5. MEGACE (MEGESTROL ACETATE) [Concomitant]
  6. OMEPRAZOLE (OMEPRAZOLE) [Concomitant]
  7. PAXIL (PAROXETINE HYDROCHLORIDE) [Concomitant]
  8. SENNA (SENNA ALEXANDRINA) [Concomitant]
  9. SIMVASTATIN (SIMVASTATIN) [Concomitant]
  10. SYNTHROID (LEVOTHYROXINE SODIUM) [Concomitant]
  11. ELIGARD (LEUPRORELIN ACETATE) [Concomitant]
  12. NOVOLOG (INSULIN ASPART) [Concomitant]
  13. LANTUS (INSULIN GLARGINE) [Concomitant]

REACTIONS (1)
  - Thrombosis in device [None]
